FAERS Safety Report 18764063 (Version 3)
Quarter: 2021Q1

REPORT INFORMATION
  Report Type: Spontaneous
  Country: US (occurrence: US)
  Receive Date: 20210120
  Receipt Date: 20210325
  Transmission Date: 20210419
  Serious: No
  Sender: FDA-Public Use
  Company Number: US-ELI_LILLY_AND_COMPANY-US202012013774

PATIENT
  Age: 64 Year
  Sex: Male

DRUGS (1)
  1. BAMLANIVIMAB. [Suspect]
     Active Substance: BAMLANIVIMAB
     Indication: COVID-19
     Dosage: UNK UNK, SINGLE
     Route: 065
     Dates: start: 20201227

REACTIONS (15)
  - Balance disorder [Unknown]
  - Tremor [Unknown]
  - Memory impairment [Unknown]
  - Pain in extremity [Unknown]
  - Feeling jittery [Unknown]
  - Muscle twitching [Unknown]
  - Fall [Unknown]
  - Vision blurred [Unknown]
  - Hypersomnia [Unknown]
  - Pollakiuria [Unknown]
  - Confusional state [Unknown]
  - Gait disturbance [Unknown]
  - Dehydration [Unknown]
  - Back pain [Unknown]
  - Dysstasia [Unknown]

NARRATIVE: CASE EVENT DATE: 20201229
